FAERS Safety Report 8790657 (Version 1)
Quarter: 2012Q4

REPORT INFORMATION
  Report Type: Spontaneous
  Country: US (occurrence: None)
  Receive Date: 20120913
  Receipt Date: 20120913
  Transmission Date: 20130627
  Serious: Yes (Other)
  Sender: FDA-Public Use
  Company Number: None

PATIENT
  Sex: Male

DRUGS (7)
  1. HYDROQUINONE [Suspect]
     Indication: FRECKLES
     Dosage: single use,
2% hydroquinone 1x topical 060 (face)
     Dates: start: 201111
  2. HYDROQUINONE [Suspect]
     Indication: LIVER SPOTS
     Dosage: single use,
2% hydroquinone 1x topical 060 (face)
     Dates: start: 201111
  3. ASPIRIN [Concomitant]
  4. COUMADIN [Concomitant]
  5. TOPROL [Concomitant]
  6. VYTORIN [Concomitant]
  7. TRAZADONE [Concomitant]

REACTIONS (4)
  - Application site pain [None]
  - Application site pain [None]
  - Skin lesion [None]
  - Application site erythema [None]
